FAERS Safety Report 20834605 (Version 6)
Quarter: 2024Q1

REPORT INFORMATION
  Report Type: Spontaneous
  Country: US (occurrence: US)
  Receive Date: 20220516
  Receipt Date: 20240215
  Transmission Date: 20240410
  Serious: Yes (Other)
  Sender: FDA-Public Use
  Company Number: US-PFIZER INC-202200650730

PATIENT
  Age: 73 Year
  Sex: Female

DRUGS (1)
  1. IBRANCE [Suspect]
     Active Substance: PALBOCICLIB
     Indication: Breast cancer female
     Dosage: TAKE 1 TABLET BY MOUTH DAILY FOR 3 WEEKS THEN ONE WEEK OFF
     Route: 048

REACTIONS (4)
  - Hip arthroplasty [Unknown]
  - Benign gastric neoplasm [Unknown]
  - Full blood count decreased [Unknown]
  - Hypersomnia [Unknown]
